FAERS Safety Report 10693092 (Version 2)
Quarter: 2015Q1

REPORT INFORMATION
  Report Type: Spontaneous
  Country: IT (occurrence: IT)
  Receive Date: 20150106
  Receipt Date: 20150128
  Transmission Date: 20150720
  Serious: Yes (Hospitalization)
  Sender: FDA-Public Use
  Company Number: IT-PFIZER INC-2014363049

PATIENT
  Age: 65 Year
  Sex: Female

DRUGS (7)
  1. OMEPRAZOLE. [Concomitant]
     Active Substance: OMEPRAZOLE
     Indication: RHABDOMYOSARCOMA RECURRENT
     Dosage: 40 MG, UNK
     Route: 042
     Dates: start: 20141129, end: 20141129
  2. VINCRISTINA PFIZER ITALIA [Suspect]
     Active Substance: VINCRISTINE
     Indication: RHABDOMYOSARCOMA RECURRENT
     Dosage: 1.5 MG/M2, MONTHLY
     Route: 042
     Dates: start: 20141129
  3. DOXORUBICIN HCL [Suspect]
     Active Substance: DOXORUBICIN HYDROCHLORIDE
     Indication: RHABDOMYOSARCOMA RECURRENT
     Dosage: 40 MG/M2, MONTHLY
     Route: 042
     Dates: start: 20141129
  4. CYCLOPHOSPHAMIDE. [Suspect]
     Active Substance: CYCLOPHOSPHAMIDE
     Indication: RHABDOMYOSARCOMA RECURRENT
     Dosage: 1200 MG/M2, MONTHLY
     Route: 042
     Dates: start: 20141129
  5. LYRICA [Concomitant]
     Active Substance: PREGABALIN
     Indication: RHABDOMYOSARCOMA RECURRENT
     Dosage: 75 MG, UNK
     Route: 048
  6. FENTALGON [Concomitant]
     Dosage: 25 ?G, UNK
     Route: 062
  7. CLEXANE [Concomitant]
     Active Substance: ENOXAPARIN SODIUM
     Dosage: 4 IU, UNK
     Route: 058

REACTIONS (1)
  - Anaemia [Recovered/Resolved]

NARRATIVE: CASE EVENT DATE: 20141206
